FAERS Safety Report 7981720-9 (Version None)
Quarter: 2011Q4

REPORT INFORMATION
  Report Type: 
  Country: None (occurrence: None)
  Receive Date: 20111215
  Receipt Date: 20111207
  Transmission Date: 20120403
  Serious: Yes (Hospitalization)
  Sender: FDA-Public Use
  Company Number: US-JNJFOC-20110906291

PATIENT
  Sex: Female

DRUGS (19)
  1. INVEGA [Suspect]
     Route: 048
     Dates: start: 20110301
  2. LITHIUM CARBONATE [Suspect]
     Indication: SCHIZOAFFECTIVE DISORDER
     Dosage: 4 TABLETS ONCE A DAY
     Route: 048
  3. INVEGA [Suspect]
     Route: 048
     Dates: start: 20110801
  4. LEXAPRO [Concomitant]
     Indication: SCHIZOAFFECTIVE DISORDER
     Route: 065
     Dates: start: 20101001
  5. INVEGA [Suspect]
     Route: 048
     Dates: start: 20110601
  6. INVEGA [Suspect]
     Indication: BIPOLAR DISORDER
     Route: 048
     Dates: start: 20110315
  7. INVEGA [Suspect]
     Route: 048
     Dates: start: 20110623
  8. INVEGA [Suspect]
     Indication: SCHIZOAFFECTIVE DISORDER
     Route: 048
     Dates: start: 20110315
  9. INVEGA [Suspect]
     Route: 048
     Dates: start: 20110601
  10. LITHIUM CARBONATE [Suspect]
     Indication: BIPOLAR DISORDER
     Dosage: 4 TABLETS ONCE A DAY
     Route: 048
  11. LEXAPRO [Concomitant]
     Indication: DEPRESSION
     Route: 065
     Dates: start: 20101001
  12. INVEGA [Suspect]
     Route: 048
     Dates: start: 20110901
  13. INVEGA [Suspect]
     Route: 048
     Dates: start: 20110801
  14. INVEGA [Suspect]
     Route: 048
     Dates: start: 20110901
  15. LEXAPRO [Concomitant]
     Indication: BIPOLAR DISORDER
     Route: 065
     Dates: start: 20101001
  16. INVEGA [Suspect]
     Route: 048
     Dates: start: 20110301
  17. INVEGA [Suspect]
     Route: 048
     Dates: start: 20110623
  18. FLOMAX [Concomitant]
     Route: 048
  19. TRAZODONE HCL [Concomitant]
     Indication: SLEEP DISORDER
     Dosage: 1-2 TABLETS
     Route: 065
     Dates: start: 20110623, end: 20110801

REACTIONS (5)
  - MALAISE [None]
  - ALANINE AMINOTRANSFERASE INCREASED [None]
  - BLOOD GLUCOSE INCREASED [None]
  - WRONG TECHNIQUE IN DRUG USAGE PROCESS [None]
  - ASPARTATE AMINOTRANSFERASE INCREASED [None]
